FAERS Safety Report 4521941-0 (Version None)
Quarter: 2004Q4

REPORT INFORMATION
  Report Type: 
  Country: None (occurrence: None)
  Receive Date: 20041207
  Receipt Date: 20041207
  Transmission Date: 20050328
  Serious: Yes (Life-Threatening, Hospitalization)
  Sender: FDA-Public Use
  Company Number: None

PATIENT
  Age: 24 Year
  Sex: Male
  Weight: 110.6777 kg

DRUGS (1)
  1. CLOZAPINE [Suspect]
     Indication: SCHIZOPHRENIA, PARANOID TYPE
     Dosage: 375MG  PO BID
     Route: 048
     Dates: start: 20040801, end: 20041018

REACTIONS (2)
  - AGRANULOCYTOSIS [None]
  - BODY TEMPERATURE INCREASED [None]
